FAERS Safety Report 7394213-7 (Version None)
Quarter: 2011Q2

REPORT INFORMATION
  Report Type: 
  Country: None (occurrence: None)
  Receive Date: 20110405
  Receipt Date: 20110328
  Transmission Date: 20111010
  Serious: Yes (Other)
  Sender: FDA-Public Use
  Company Number: FR-TEVA-260905ISR

PATIENT
  Age: 50 Year
  Sex: Female

DRUGS (1)
  1. COPAXONE [Suspect]
     Indication: MULTIPLE SCLEROSIS
     Route: 058
     Dates: end: 20090801

REACTIONS (3)
  - HYPERSENSITIVITY [None]
  - EMBOLIA CUTIS MEDICAMENTOSA [None]
  - IMMEDIATE POST-INJECTION REACTION [None]
